FAERS Safety Report 8119657-7 (Version None)
Quarter: 2012Q1

REPORT INFORMATION
  Report Type: 
  Country: None (occurrence: None)
  Receive Date: 20120207
  Receipt Date: 20120127
  Transmission Date: 20120608
  Serious: Yes (Hospitalization)
  Sender: FDA-Public Use
  Company Number: FR-MERCK-1112FRA00007

PATIENT
  Age: 44 Year
  Sex: Male

DRUGS (14)
  1. CANCIDAS [Suspect]
     Indication: CANDIDIASIS
     Route: 042
     Dates: start: 20110825
  2. SODIUM BICARBONATE [Concomitant]
     Route: 065
  3. SMECTITE AND VANILLA [Concomitant]
     Route: 065
  4. PANTOPRAZOLE SODIUM [Concomitant]
     Route: 065
  5. AZATHIOPRINE [Concomitant]
     Route: 048
  6. CARBOHYDRATES (UNSPECIFIED) AND FAT (UNSPECIFIED) AND MINERALS (UNSPEC [Concomitant]
     Route: 065
  7. PREDNISONE [Concomitant]
     Route: 065
  8. ASPIRIN LYSINE [Concomitant]
     Route: 048
  9. RACECADOTRIL [Concomitant]
     Route: 065
  10. ATENOLOL [Concomitant]
     Route: 048
  11. CYCLOSPORINE [Concomitant]
     Route: 065
  12. VALGANCICLOVIR HYDROCHLORIDE [Concomitant]
     Route: 065
  13. TRAMADOL HYDROCHLORIDE [Concomitant]
     Route: 048
  14. PENTAMIDINE ISETHIONATE [Concomitant]
     Route: 065

REACTIONS (1)
  - DEEP VEIN THROMBOSIS [None]
